FAERS Safety Report 25912780 (Version 2)
Quarter: 2025Q4

REPORT INFORMATION
  Report Type: Spontaneous
  Country: GB (occurrence: GB)
  Receive Date: 20251013
  Receipt Date: 20251017
  Transmission Date: 20260117
  Serious: Yes (Life-Threatening, Hospitalization, Disabling, Other)
  Sender: JUBILANT
  Company Number: None

PATIENT

DRUGS (4)
  1. OLANZAPINE [Suspect]
     Active Substance: OLANZAPINE
     Indication: Schizophrenia
     Dosage: 10 MG, ONCE PER DAY (5 MG TWICE DAILY)
     Route: 048
     Dates: start: 2018
  2. OLANZAPINE [Suspect]
     Active Substance: OLANZAPINE
     Dosage: 15 MG, ONCE PER DAY
     Route: 048
  3. OLANZAPINE [Suspect]
     Active Substance: OLANZAPINE
     Dosage: 20 MG, ONCE PER DAY (DOSE WAS FURTHER ESCALATED TO 20 MG APPROXIMATELY 15 DAYS BEFORE HOSPITAL ADMIS
     Route: 048
  4. LURASIDONE [Concomitant]
     Active Substance: LURASIDONE
     Indication: Schizophrenia
     Dosage: 74 MG, ONCE PER DAY NIGHTLY
     Route: 048

REACTIONS (4)
  - Inappropriate antidiuretic hormone secretion [Recovering/Resolving]
  - Rhabdomyolysis [Recovering/Resolving]
  - Peroneal nerve injury [Recovering/Resolving]
  - Peroneal nerve palsy [Recovering/Resolving]
